FAERS Safety Report 5432966-5 (Version None)
Quarter: 2007Q3

REPORT INFORMATION
  Report Type: 
  Country: None (occurrence: None)
  Receive Date: 20070831
  Receipt Date: 20070823
  Transmission Date: 20080115
  Serious: Yes (Life-Threatening)
  Sender: FDA-Public Use
  Company Number: JP-JNJFOC-20070603599

PATIENT
  Sex: Male
  Weight: 41 kg

DRUGS (5)
  1. RISPERDAL [Suspect]
     Indication: DRUG ADMINISTRATION ERROR
     Route: 048
  2. MILNACIPRAN [Concomitant]
     Indication: DEPRESSION
     Route: 048
  3. MAGNESIUM OXIDE [Concomitant]
  4. SENNA [Concomitant]
     Route: 048
  5. CYSTEINE HYDROCHLORIDE [Concomitant]
     Indication: DEPRESSION
     Route: 048

REACTIONS (5)
  - ACCIDENTAL EXPOSURE [None]
  - ALTERED STATE OF CONSCIOUSNESS [None]
  - APNOEA [None]
  - PNEUMONIA ASPIRATION [None]
  - WRONG DRUG ADMINISTERED [None]
